FAERS Safety Report 4386941-2 (Version None)
Quarter: 2004Q2

REPORT INFORMATION
  Report Type: 
  Country: None (occurrence: None)
  Receive Date: 20040623
  Receipt Date: 20040608
  Transmission Date: 20050107
  Serious: Yes (Life-Threatening, Hospitalization)
  Sender: FDA-Public Use
  Company Number: 2004-DE-03228GD

PATIENT
  Age: 47 Year
  Sex: Male

DRUGS (2)
  1. CLONIDINE [Suspect]
     Indication: DETOXIFICATION
     Dosage: SEE IMAGE
  2. METHADONE HCL [Suspect]
     Indication: DRUG DEPENDENCE

REACTIONS (19)
  - ANGER [None]
  - ANXIETY [None]
  - BLOOD PRESSURE DECREASED [None]
  - BLUNTED AFFECT [None]
  - CARDIAC ENZYMES INCREASED [None]
  - CHEST PAIN [None]
  - CONVULSION [None]
  - DISEASE RECURRENCE [None]
  - DRUG DEPENDENCE [None]
  - DRUG SCREEN POSITIVE [None]
  - DRUG WITHDRAWAL SYNDROME [None]
  - DYSARTHRIA [None]
  - IRRITABILITY [None]
  - LABILE HYPERTENSION [None]
  - LOSS OF CONSCIOUSNESS [None]
  - MIGRAINE [None]
  - PARANOIA [None]
  - SELF-MEDICATION [None]
  - VISION BLURRED [None]
